FAERS Safety Report 9612137 (Version 2)
Quarter: 2014Q1

REPORT INFORMATION
  Report Type: Spontaneous
  Country: US (occurrence: US)
  Receive Date: 20131010
  Receipt Date: 20140113
  Transmission Date: 20141002
  Serious: No
  Sender: FDA-Public Use
  Company Number: US-ASTELLAS-2013US009683

PATIENT
  Age: 78 Year
  Sex: Female

DRUGS (5)
  1. MYRBETRIQ [Suspect]
     Indication: HYPERTONIC BLADDER
     Dosage: 50 MG, UID/QD
     Route: 048
     Dates: start: 20130909, end: 20130909
  2. MYRBETRIQ [Suspect]
     Dosage: 50 MG, UID/QD
     Route: 048
     Dates: start: 20131006
  3. FOSAMAX [Concomitant]
     Indication: PRODUCT USED FOR UNKNOWN INDICATION
     Dosage: UNK
     Route: 065
  4. THYROID PREPARATIONS [Concomitant]
     Indication: PRODUCT USED FOR UNKNOWN INDICATION
     Dosage: UNK
     Route: 065
  5. EYE DROPS [Concomitant]
     Indication: GLAUCOMA
     Dosage: UNK
     Route: 065

REACTIONS (4)
  - Intentional drug misuse [Unknown]
  - Drug ineffective [Unknown]
  - Hot flush [Not Recovered/Not Resolved]
  - Dizziness [Recovered/Resolved]
